FAERS Safety Report 6500406-0 (Version None)
Quarter: 2009Q4

REPORT INFORMATION
  Report Type: 
  Country: None (occurrence: None)
  Receive Date: 20091216
  Receipt Date: 20091208
  Transmission Date: 20100525
  Serious: Yes (Other)
  Sender: FDA-Public Use
  Company Number: PHEH2009US14283

PATIENT
  Sex: Female

DRUGS (10)
  1. EXJADE [Suspect]
     Indication: MYELODYSPLASTIC SYNDROME
     Dosage: 500 MG, TWICE DAILY
     Route: 048
     Dates: start: 20091012, end: 20091027
  2. EXJADE [Suspect]
     Dosage: 500 MG, BID
     Route: 048
  3. CAPTOPRIL AND HYDROCHLOROTHIAZIDE [Concomitant]
  4. TOPROL-XL [Concomitant]
  5. PAROXETINE HCL [Concomitant]
  6. ALPRAZOLAM [Concomitant]
  7. CALCIUM [Concomitant]
  8. MULTIVITAMIN [Concomitant]
  9. ADVIL [Concomitant]
  10. XANAX [Concomitant]

REACTIONS (4)
  - ABDOMINAL PAIN UPPER [None]
  - BACK PAIN [None]
  - DIARRHOEA [None]
  - SPINAL FRACTURE [None]
